FAERS Safety Report 5319103-2 (Version None)
Quarter: 2007Q2

REPORT INFORMATION
  Report Type: 
  Country: None (occurrence: None)
  Receive Date: 20070508
  Receipt Date: 20070507
  Transmission Date: 20071010
  Serious: Yes (Hospitalization)
  Sender: FDA-Public Use
  Company Number: A0649963A

PATIENT
  Sex: Female

DRUGS (5)
  1. COREG [Suspect]
     Dosage: 25MG TWICE PER DAY
     Route: 048
  2. COREG CR [Suspect]
     Indication: LEFT VENTRICULAR DYSFUNCTION
     Dosage: 20MG IN THE MORNING
     Route: 048
  3. UNKNOWN [Concomitant]
  4. FOSAMAX [Concomitant]
  5. COZAAR [Concomitant]

REACTIONS (5)
  - ARRHYTHMIA [None]
  - BLOOD PRESSURE DECREASED [None]
  - CYANOSIS [None]
  - DIZZINESS [None]
  - NAUSEA [None]
